FAERS Safety Report 17518470 (Version 2)
Quarter: 2020Q2

REPORT INFORMATION
  Report Type: Report from Study
  Country: US (occurrence: US)
  Receive Date: 20200309
  Receipt Date: 20200414
  Transmission Date: 20200713
  Serious: Yes (Death, Hospitalization, Other)
  Sender: FDA-Public Use
  Company Number: US-EISAI MEDICAL RESEARCH-EC-2020-068405

PATIENT
  Age: 73 Year
  Sex: Female

DRUGS (15)
  1. HYDROCHLOROTHIAZIDE;LOSARTAN [Concomitant]
     Active Substance: HYDROCHLOROTHIAZIDE\LOSARTAN
  2. OMEPRAZOLE. [Concomitant]
     Active Substance: OMEPRAZOLE
  3. APIXABAN [Concomitant]
     Active Substance: APIXABAN
  4. LENVIMA [Suspect]
     Active Substance: LENVATINIB
     Indication: ENDOMETRIAL CANCER
     Route: 048
     Dates: start: 20200105, end: 202002
  5. GRANISETRON [Concomitant]
     Active Substance: GRANISETRON
  6. LENVIMA [Suspect]
     Active Substance: LENVATINIB
     Route: 048
     Dates: start: 202002
  7. OLANZAPINE. [Concomitant]
     Active Substance: OLANZAPINE
  8. CHOLECALCIFEROL [Concomitant]
     Active Substance: CHOLECALCIFEROL
  9. NAPROXEN. [Concomitant]
     Active Substance: NAPROXEN
  10. ASCORBIC ACID. [Concomitant]
     Active Substance: ASCORBIC ACID
  11. COLCHICINE. [Concomitant]
     Active Substance: COLCHICINE
  12. NYSTATIN. [Concomitant]
     Active Substance: NYSTATIN
  13. AMLODIPINE [Concomitant]
     Active Substance: AMLODIPINE BESYLATE
  14. AMMONIUM LACTATE. [Concomitant]
     Active Substance: AMMONIUM LACTATE
  15. PYRIDOXINE [Concomitant]
     Active Substance: PYRIDOXINE

REACTIONS (7)
  - Dehydration [Unknown]
  - Dysphagia [Unknown]
  - Fatigue [Not Recovered/Not Resolved]
  - Diarrhoea [Not Recovered/Not Resolved]
  - Death [Fatal]
  - Nausea [Not Recovered/Not Resolved]
  - Faeces soft [Not Recovered/Not Resolved]

NARRATIVE: CASE EVENT DATE: 202001
